FAERS Safety Report 8834838 (Version 1)
Quarter: 2012Q4

REPORT INFORMATION
  Report Type: 
  Country: HR (occurrence: HR)
  Receive Date: 20121010
  Receipt Date: 20121010
  Transmission Date: 20130627
  Serious: Yes (Other)
  Sender: FDA-Public Use
  Company Number: HR-GLAXOSMITHKLINE-B0836430A

PATIENT
  Sex: Male
  Weight: 90 kg

DRUGS (2)
  1. AVODART [Suspect]
     Indication: PRODUCT USED FOR UNKNOWN INDICATION
     Dosage: .5MG per day
     Route: 048
     Dates: start: 20120531, end: 20120801
  2. OMNIC [Concomitant]
     Route: 048

REACTIONS (1)
  - Rash maculo-papular [Unknown]
